FAERS Safety Report 9329692 (Version 1)
Quarter: 2013Q2

REPORT INFORMATION
  Report Type: Spontaneous
  Country: US (occurrence: US)
  Receive Date: 20130604
  Receipt Date: 20130604
  Transmission Date: 20140414
  Serious: Yes (Other)
  Sender: FDA-Public Use
  Company Number: US-SANOFI-AVENTIS-2012SA090991

PATIENT
  Age: 66 Year
  Sex: Male
  Weight: 63.5 kg

DRUGS (2)
  1. LANTUS [Suspect]
     Indication: TYPE 2 DIABETES MELLITUS
     Dosage: DOSE:18 UNIT(S)
     Route: 058
     Dates: start: 20111214
  2. LISINOPRIL [Concomitant]
     Indication: HYPERTENSION
     Dates: start: 2002

REACTIONS (1)
  - Hypoglycaemic unconsciousness [Recovered/Resolved]
